FAERS Safety Report 25078293 (Version 1)
Quarter: 2025Q1

REPORT INFORMATION
  Report Type: Spontaneous
  Country: US (occurrence: None)
  Receive Date: 20250313
  Receipt Date: 20250313
  Transmission Date: 20250408
  Serious: No
  Sender: FDA-CTU
  Company Number: None

PATIENT
  Sex: Female

DRUGS (5)
  1. DEVICE [Suspect]
     Active Substance: DEVICE
     Indication: Immunodeficiency common variable
     Dosage: OTHER STRENGTH : RMS2-2609;?FREQUENCY : WEEKLY;?
     Route: 058
     Dates: start: 202405
  2. DEVICE [Suspect]
     Active Substance: DEVICE
     Indication: Immunodeficiency common variable
     Dosage: OTHER STRENGTH : FP-0010026;?FREQUENCY : WEEKLY;?
     Route: 058
     Dates: start: 202405
  3. HIZENTRA [Suspect]
     Active Substance: HUMAN IMMUNOGLOBULIN G
  4. FASENRA [Concomitant]
     Active Substance: BENRALIZUMAB
  5. HIZFNTRA 20% PFS (4GM TOTAL) [Concomitant]

REACTIONS (5)
  - Needle issue [None]
  - Device leakage [None]
  - Limb injury [None]
  - Haemorrhage [None]
  - Product contamination physical [None]
